FAERS Safety Report 6249516-6 (Version None)
Quarter: 2009Q2

REPORT INFORMATION
  Report Type: 
  Country: None (occurrence: None)
  Receive Date: 20090629
  Receipt Date: 20090617
  Transmission Date: 20091009
  Serious: Yes (Other)
  Sender: FDA-Public Use
  Company Number: B0580269A

PATIENT
  Age: 32 Year
  Sex: Female

DRUGS (3)
  1. LAMIVUDINE [Suspect]
     Indication: HIV INFECTION
     Route: 065
     Dates: start: 20061001
  2. STAVUDINE [Suspect]
     Indication: HIV INFECTION
     Route: 065
     Dates: start: 20061001
  3. NEVIRAPINE [Suspect]
     Indication: HIV INFECTION
     Route: 065
     Dates: start: 20061001

REACTIONS (6)
  - ERYTHEMA [None]
  - IMMUNE RECONSTITUTION SYNDROME [None]
  - SENSORY LOSS [None]
  - SKIN LESION [None]
  - SKIN OEDEMA [None]
  - TUBERCULOID LEPROSY [None]
